FAERS Safety Report 6252849-0 (Version None)
Quarter: 2009Q2

REPORT INFORMATION
  Report Type: 
  Country: None (occurrence: None)
  Receive Date: 20090629
  Receipt Date: 20090616
  Transmission Date: 20091009
  Serious: Yes (Other)
  Sender: FDA-Public Use
  Company Number: 2009AP002441

PATIENT
  Sex: Female

DRUGS (2)
  1. CARVEDILOL [Suspect]
  2. DILTIAZEM HYDROCHLORIDE [Suspect]

REACTIONS (8)
  - ARRHYTHMIA [None]
  - BRADYCARDIA [None]
  - CHEST PAIN [None]
  - HYPOTENSION [None]
  - INSOMNIA [None]
  - QUALITY OF LIFE DECREASED [None]
  - TINNITUS [None]
  - VERTIGO [None]
